FAERS Safety Report 20614597 (Version 2)
Quarter: 2025Q3

REPORT INFORMATION
  Report Type: Spontaneous
  Country: EU (occurrence: EU)
  Receive Date: 20220321
  Receipt Date: 20250829
  Transmission Date: 20251020
  Serious: Yes (Life-Threatening, Hospitalization)
  Sender: AUROBINDO
  Company Number: EU-POLPHARMA-132380-420252

PATIENT
  Age: 20 Month
  Weight: 7 kg

DRUGS (5)
  1. LINEZOLID [Suspect]
     Active Substance: LINEZOLID
     Indication: Gastrointestinal infection
     Route: 065
  2. FOSFOMYCIN [Suspect]
     Active Substance: FOSFOMYCIN
     Indication: Gastrointestinal infection
     Route: 065
  3. MEROPENEM [Suspect]
     Active Substance: MEROPENEM
     Indication: Gastrointestinal infection
     Route: 065
  4. COLISTIN [Suspect]
     Active Substance: COLISTIN
     Indication: Gastrointestinal infection
     Route: 065
  5. AMIKACIN [Suspect]
     Active Substance: AMIKACIN
     Indication: Gastrointestinal infection
     Route: 065

REACTIONS (1)
  - Drug ineffective [Unknown]
